FAERS Safety Report 9017977 (Version 1)
Quarter: 2013Q1

REPORT INFORMATION
  Report Type: Spontaneous
  Country: AU (occurrence: AU)
  Receive Date: 20130118
  Receipt Date: 20130118
  Transmission Date: 20140127
  Serious: Yes (Hospitalization)
  Sender: FDA-Public Use
  Company Number: AU-009507513-1301AUS007097

PATIENT
  Age: 72 Year
  Sex: Female
  Weight: 64.8 kg

DRUGS (4)
  1. JANUVIA [Suspect]
     Indication: HYPOGLYCAEMIA
     Dosage: 50 MG, QD
     Dates: start: 20121006, end: 20121008
  2. ASPIRIN [Concomitant]
  3. ATORVASTATIN [Concomitant]
     Dosage: UNK
     Dates: end: 20121008
  4. CALCITRIOL [Concomitant]

REACTIONS (2)
  - Hepatic function abnormal [Not Recovered/Not Resolved]
  - Blood lactate dehydrogenase increased [Not Recovered/Not Resolved]
